FAERS Safety Report 9965439 (Version 1)
Quarter: 2014Q1

REPORT INFORMATION
  Report Type: Report from Study
  Country: US (occurrence: US)
  Receive Date: 20140305
  Receipt Date: 20140305
  Transmission Date: 20141002
  Serious: No
  Sender: FDA-Public Use
  Company Number: US-ABBVIE-13P-163-1124286-00

PATIENT
  Age: 51 Year
  Sex: Male
  Weight: 92.16 kg

DRUGS (17)
  1. HUMIRA [Suspect]
     Indication: RHEUMATOID ARTHRITIS
     Dates: start: 201210
  2. METHOTREXATE [Concomitant]
     Indication: RHEUMATOID ARTHRITIS
  3. PREDNISONE [Concomitant]
     Indication: RHEUMATOID ARTHRITIS
  4. MELOXICAM [Concomitant]
     Indication: PAIN
  5. HYDROCODONE [Concomitant]
     Indication: PAIN
  6. FOLIC ACID [Concomitant]
     Indication: VITAMIN SUPPLEMENTATION
  7. ZANAFLEX [Concomitant]
     Indication: OSTEOARTHRITIS
  8. ATENOLOL [Concomitant]
     Indication: BLOOD PRESSURE
  9. HYDROCHLOROTHIAZIDE [Concomitant]
     Indication: BLOOD PRESSURE
  10. LISINOPRIL [Concomitant]
     Indication: BLOOD PRESSURE
  11. ASPIRIN [Concomitant]
     Indication: CARDIAC DISORDER
  12. ALPRAZOLAM [Concomitant]
     Indication: ANXIETY
  13. TEMAZEPAM [Concomitant]
     Indication: INSOMNIA
  14. WELLBUTRIN [Concomitant]
     Indication: DEPRESSION
  15. FLONASE [Concomitant]
     Indication: HYPERSENSITIVITY
  16. ZYRTEC [Concomitant]
     Indication: HYPERSENSITIVITY
  17. ENBREL [Concomitant]
     Indication: PRODUCT USED FOR UNKNOWN INDICATION
     Dates: start: 2004, end: 201210

REACTIONS (7)
  - Gait disturbance [Not Recovered/Not Resolved]
  - Laceration [Recovered/Resolved]
  - Local swelling [Not Recovered/Not Resolved]
  - Local swelling [Not Recovered/Not Resolved]
  - Pain in extremity [Not Recovered/Not Resolved]
  - Pain in extremity [Not Recovered/Not Resolved]
  - Drug dose omission [Unknown]
